FAERS Safety Report 9010001 (Version 2)
Quarter: 2013Q1

REPORT INFORMATION
  Report Type: Spontaneous
  Country: US (occurrence: US)
  Receive Date: 20130110
  Receipt Date: 20130201
  Transmission Date: 20140127
  Serious: Yes (Disabling)
  Sender: FDA-Public Use
  Company Number: US-ASTELLAS-2013US000214

PATIENT
  Sex: Male
  Weight: 64 kg

DRUGS (1)
  1. PROGRAF [Suspect]
     Indication: RENAL TRANSPLANT
     Dosage: 0.5 MG, BID
     Route: 048
     Dates: start: 20101216

REACTIONS (3)
  - Spinal osteoarthritis [Unknown]
  - Arthritis [Unknown]
  - Bone disorder [Unknown]
